FAERS Safety Report 13838748 (Version 1)
Quarter: 2017Q3

REPORT INFORMATION
  Report Type: Spontaneous
  Country: US (occurrence: US)
  Receive Date: 20170804
  Receipt Date: 20170804
  Transmission Date: 20171127
  Serious: Yes (Hospitalization)
  Sender: FDA-Public Use
  Company Number: None

PATIENT
  Age: 76 Year
  Sex: Female

DRUGS (2)
  1. ESBRIET [Suspect]
     Active Substance: PIRFENIDONE
     Indication: IDIOPATHIC PULMONARY FIBROSIS
     Route: 048
     Dates: start: 20160505
  2. PROAIR HFA AER [Concomitant]

REACTIONS (4)
  - Dyspnoea [None]
  - Drug dose omission [None]
  - Chest discomfort [None]
  - Memory impairment [None]

NARRATIVE: CASE EVENT DATE: 20170803
